FAERS Safety Report 21921889 (Version 1)
Quarter: 2023Q1

REPORT INFORMATION
  Report Type: Spontaneous
  Country: US (occurrence: US)
  Receive Date: 20230127
  Receipt Date: 20230127
  Transmission Date: 20230417
  Serious: Yes (Other)
  Sender: FDA-Public Use
  Company Number: US-MALLINCKRODT-T202300511

PATIENT
  Age: 69 Year
  Sex: Male

DRUGS (2)
  1. H.P. ACTHAR [Suspect]
     Active Substance: CORTICOTROPIN
     Indication: Nephrotic syndrome
     Dosage: 0.5 MILLILITER (40 UNITS), BIW
     Route: 058
     Dates: start: 20230102
  2. H.P. ACTHAR [Suspect]
     Active Substance: CORTICOTROPIN
     Indication: Glomerulonephritis membranous

REACTIONS (2)
  - Retinal tear [Recovering/Resolving]
  - Retinal operation [Recovering/Resolving]

NARRATIVE: CASE EVENT DATE: 20230111
